FAERS Safety Report 10049155 (Version 1)
Quarter: 2014Q2

REPORT INFORMATION
  Report Type: Spontaneous
  Country: CA (occurrence: CA)
  Receive Date: 20140401
  Receipt Date: 20140401
  Transmission Date: 20141212
  Serious: Yes (Hospitalization)
  Sender: FDA-Public Use
  Company Number: CA-ROCHE-1374985

PATIENT
  Age: 14 Year
  Sex: Male
  Weight: 37 kg

DRUGS (9)
  1. ACTEMRA [Suspect]
     Indication: PRODUCT USED FOR UNKNOWN INDICATION
     Route: 042
  2. WINPRED [Suspect]
     Indication: PRODUCT USED FOR UNKNOWN INDICATION
     Route: 065
  3. ENALAPRIL [Concomitant]
     Route: 065
  4. ERGOCALCIFEROL [Concomitant]
     Route: 065
  5. GABAPENTIN [Concomitant]
     Route: 065
  6. IBUPROFEN [Concomitant]
     Route: 065
  7. LOSEC [Concomitant]
     Route: 065
  8. MORPHINE [Concomitant]
     Route: 065
  9. TYLENOL #1 (CANADA) [Concomitant]
     Route: 065

REACTIONS (1)
  - Spinal fracture [Recovering/Resolving]
